FAERS Safety Report 6672829-0 (Version None)
Quarter: 2010Q2

REPORT INFORMATION
  Report Type: 
  Country: None (occurrence: None)
  Receive Date: 20100408
  Receipt Date: 20100325
  Transmission Date: 20101027
  Serious: Yes (Hospitalization, Other)
  Sender: FDA-Public Use
  Company Number: PHHY2009BR27533

PATIENT
  Sex: Female

DRUGS (10)
  1. EXELON [Suspect]
     Indication: DEMENTIA ALZHEIMER'S TYPE
     Dosage: 3 MG, BID
     Route: 048
     Dates: start: 20040101
  2. EXELON [Suspect]
     Dosage: 9 MG/5CM2, 1 PATCH PER DAY
     Route: 062
     Dates: start: 20090530
  3. PAMELOR [Concomitant]
     Indication: ANXIETY
     Dosage: UNK
     Route: 048
  4. TRIFLUSAL [Concomitant]
     Dosage: 1 TABLET AFTER LUNCH AND 1 TABLET AFTER DINNER
     Route: 048
  5. AAS [Concomitant]
  6. HIDANTAL [Concomitant]
     Dosage: 1 DF, BID
  7. CILOSTAZOL [Concomitant]
     Dosage: 50 MG, BID
  8. CAPTOPRIL [Concomitant]
     Indication: BLOOD PRESSURE INCREASED
     Dosage: 1 TABLET IN THE MORNING AND 1 TABLET IN THE NIGHT
     Route: 048
  9. INSULIN [Concomitant]
     Indication: DIABETES MELLITUS
     Dosage: 15 UI PER DAY
     Route: 058
     Dates: end: 20090705
  10. DIAMICRON [Concomitant]
     Indication: DIABETES MELLITUS
     Dosage: 1 TABLET IN FASTING
     Route: 048

REACTIONS (5)
  - BLOOD GLUCOSE DECREASED [None]
  - DEHYDRATION [None]
  - LIVER DISORDER [None]
  - URINARY TRACT INFECTION [None]
  - VOMITING [None]
